FAERS Safety Report 15746090 (Version 1)
Quarter: 2018Q4

REPORT INFORMATION
  Report Type: Report from Study
  Country: US (occurrence: US)
  Receive Date: 20181220
  Receipt Date: 20181220
  Transmission Date: 20190205
  Serious: Yes (Hospitalization)
  Sender: FDA-Public Use
  Company Number: US-ACTELION-A-NJ2017-152684

PATIENT
  Age: 51 Year
  Sex: Male
  Weight: 85.26 kg

DRUGS (8)
  1. UPTRAVI [Suspect]
     Active Substance: SELEXIPAG
     Dosage: 1800 MCG, BID
     Route: 048
  2. ELIQUIS [Concomitant]
     Active Substance: APIXABAN
  3. UPTRAVI [Suspect]
     Active Substance: SELEXIPAG
     Dosage: 2000 MCG, UNK
     Route: 048
     Dates: start: 20171228
  4. UPTRAVI [Suspect]
     Active Substance: SELEXIPAG
     Indication: PULMONARY ARTERIAL HYPERTENSION
     Dosage: 1400 MCG, BID
     Route: 048
     Dates: start: 20170412
  5. REVATIO [Concomitant]
     Active Substance: SILDENAFIL CITRATE
  6. DILTIAZEM. [Concomitant]
     Active Substance: DILTIAZEM
  7. UPTRAVI [Suspect]
     Active Substance: SELEXIPAG
     Dosage: 1200 MCG, BID
     Route: 048
     Dates: start: 20170412
  8. OPSUMIT [Suspect]
     Active Substance: MACITENTAN
     Indication: PULMONARY ARTERIAL HYPERTENSION
     Dosage: 10 MG, QD
     Route: 048

REACTIONS (6)
  - Headache [Unknown]
  - Condition aggravated [Unknown]
  - Overdose [Unknown]
  - Hospitalisation [Unknown]
  - Pain in extremity [Unknown]
  - Pain in jaw [Unknown]
